FAERS Safety Report 7148988-2 (Version None)
Quarter: 2010Q4

REPORT INFORMATION
  Report Type: 
  Country: None (occurrence: None)
  Receive Date: 20101209
  Receipt Date: 20101203
  Transmission Date: 20110411
  Serious: Yes (Hospitalization)
  Sender: FDA-Public Use
  Company Number: US-PFIZER INC-2010165015

PATIENT

DRUGS (1)
  1. TIKOSYN [Suspect]
     Dosage: 500MCG, 2X/DAY

REACTIONS (2)
  - ATRIAL FIBRILLATION [None]
  - HAEMORRHAGIC STROKE [None]
